FAERS Safety Report 18647331 (Version 3)
Quarter: 2020Q4

REPORT INFORMATION
  Report Type: Spontaneous
  Country: US (occurrence: US)
  Receive Date: 20201222
  Receipt Date: 20201223
  Transmission Date: 20210114
  Serious: No
  Sender: FDA-Public Use
  Company Number: US-JNJFOC-20201224733

PATIENT
  Sex: Male
  Weight: 81.72 kg

DRUGS (1)
  1. TYLENOL 8 HR ARTHRITIS PAIN [Suspect]
     Active Substance: ACETAMINOPHEN
     Indication: PAIN
     Dosage: LOT NUMBER: SJA044, EXPIRY DATE 31-AUG-2022, LOT NUMBER: SMA061, EXPIRY DATE 31-AUG-2023
     Route: 048

REACTIONS (1)
  - Drug ineffective [Unknown]
